FAERS Safety Report 6887924-0 (Version None)
Quarter: 2010Q3

REPORT INFORMATION
  Report Type: 
  Country: None (occurrence: None)
  Receive Date: 20100730
  Receipt Date: 20100720
  Transmission Date: 20110219
  Serious: Yes (Hospitalization)
  Sender: FDA-Public Use
  Company Number: A0785672A

PATIENT
  Age: 58 Year
  Sex: Male
  Weight: 78 kg

DRUGS (11)
  1. AVANDIA [Suspect]
     Dosage: 4MG PER DAY
     Route: 048
     Dates: start: 19990101, end: 20061001
  2. GLYBURIDE [Concomitant]
  3. ACCURETIC [Concomitant]
  4. PRAVACHOL [Concomitant]
  5. IMDUR [Concomitant]
  6. CADUET [Concomitant]
  7. TOPROL-XL [Concomitant]
  8. GLIPIZIDE [Concomitant]
  9. ARANESP [Concomitant]
  10. COREG [Concomitant]
  11. COZAAR [Concomitant]

REACTIONS (5)
  - CARDIAC FAILURE CONGESTIVE [None]
  - CONDITION AGGRAVATED [None]
  - CORONARY ARTERY DISEASE [None]
  - MYOCARDIAL INFARCTION [None]
  - RENAL DISORDER [None]
